FAERS Safety Report 6659647-4 (Version None)
Quarter: 2010Q1

REPORT INFORMATION
  Report Type: 
  Country: None (occurrence: None)
  Receive Date: 20100330
  Receipt Date: 20100319
  Transmission Date: 20100710
  Serious: Yes (Disabling)
  Sender: FDA-Public Use
  Company Number: GB-AMGEN-US396015

PATIENT
  Sex: Male

DRUGS (5)
  1. ENBREL [Suspect]
     Indication: ANKYLOSING SPONDYLITIS
     Route: 058
     Dates: start: 20060619, end: 20090801
  2. ENBREL [Suspect]
     Route: 058
     Dates: start: 20100315
  3. DICLOFENAC [Suspect]
     Indication: PAIN
     Dosage: FROM UNSPECIFIED DATE, 50MG TDS REDUCED ON 15-MAR-2010
     Route: 048
  4. CODEINE PHOSPHATE/PARACETAMOL [Concomitant]
     Indication: PAIN
     Route: 048
     Dates: end: 20100301
  5. CODEINE PHOSPHATE/PARACETAMOL [Concomitant]
     Dosage: UNKNOWN
     Route: 048
     Dates: start: 20100301

REACTIONS (6)
  - ANKYLOSING SPONDYLITIS [None]
  - CONDITION AGGRAVATED [None]
  - DEPRESSION SUICIDAL [None]
  - FIBROSIS [None]
  - LIVER FUNCTION TEST ABNORMAL [None]
  - NEUTROPENIA [None]
